FAERS Safety Report 4842188-4 (Version None)
Quarter: 2005Q4

REPORT INFORMATION
  Report Type: 
  Country: None (occurrence: None)
  Receive Date: 20051130
  Receipt Date: 20030519
  Transmission Date: 20060501
  Serious: Yes (Hospitalization, Other)
  Sender: FDA-Public Use
  Company Number: GB-ABBOTT-03P-167-0219222-00

PATIENT
  Sex: Female
  Weight: 54 kg

DRUGS (9)
  1. HUMIRA [Suspect]
     Indication: RHEUMATOID ARTHRITIS
     Dosage: 40 MILLIGRAMS
     Dates: start: 20030327, end: 20030512
  2. OMEPRAZOLE [Concomitant]
     Route: 048
  3. ARCOXIA [Concomitant]
     Indication: PAIN
     Route: 048
  4. PREDNISOLONE [Concomitant]
     Indication: RHEUMATOID ARTHRITIS
     Route: 048
  5. RESIDRONATE [Concomitant]
     Indication: PROPHYLAXIS
     Route: 048
  6. ACETAMINOPHEN W/ CODEINE [Concomitant]
     Indication: PAIN
  7. TRAMADOL HCL [Concomitant]
  8. DICLOFENAC [Concomitant]
  9. ALENDRONATE SODIUM [Concomitant]

REACTIONS (7)
  - CHILLS [None]
  - MALAISE [None]
  - MENINGISM [None]
  - MENINGITIS ASEPTIC [None]
  - NAUSEA [None]
  - PHOTOPHOBIA [None]
  - VOMITING [None]
